FAERS Safety Report 10468962 (Version 1)
Quarter: 2014Q3

REPORT INFORMATION
  Report Type: Spontaneous
  Country: CA (occurrence: CA)
  Receive Date: 20140923
  Receipt Date: 20140923
  Transmission Date: 20150326
  Serious: Yes (Hospitalization)
  Sender: FDA-Public Use
  Company Number: CA-AMGEN-CANSP2014071662

PATIENT
  Age: 56 Year
  Sex: Female

DRUGS (8)
  1. ADALAT CC [Concomitant]
     Active Substance: NIFEDIPINE
     Dosage: UNK
  2. ASA [Concomitant]
     Active Substance: ASPIRIN
     Dosage: UNK
  3. COZAAR [Concomitant]
     Active Substance: LOSARTAN POTASSIUM
     Dosage: 100 MG, UNK
  4. ALFA                               /00080001/ [Concomitant]
     Dosage: UNK, 2 TABLETS
  5. SENSIPAR [Suspect]
     Active Substance: CINACALCET HYDROCHLORIDE
     Indication: RENAL FAILURE CHRONIC
     Dosage: 120 MG, UNK
     Route: 065
     Dates: start: 20080604
  6. PRAMIPEXOLE [Concomitant]
     Active Substance: PRAMIPEXOLE
     Dosage: 1 MG, UNK
  7. COLCHICIN [Concomitant]
     Active Substance: COLCHICINE
     Dosage: 0.6 MG, UNK
  8. LESCOL [Concomitant]
     Active Substance: FLUVASTATIN SODIUM
     Dosage: 40 MG, UNK, 3 TABLETS

REACTIONS (4)
  - Fluid overload [Unknown]
  - Malaise [Unknown]
  - Blood pressure increased [Unknown]
  - Stress [Unknown]

NARRATIVE: CASE EVENT DATE: 20140916
